FAERS Safety Report 7655621-X (Version None)
Quarter: 2011Q3

REPORT INFORMATION
  Report Type: 
  Country: None (occurrence: None)
  Receive Date: 20110804
  Receipt Date: 20110721
  Transmission Date: 20111222
  Serious: No
  Sender: FDA-Public Use
  Company Number: US-B.I. PHARMACEUTICALS,INC./RIDGEFIELD-2011-BP-18243BP

PATIENT
  Sex: Female

DRUGS (18)
  1. MULTI-VITAMIN [Concomitant]
     Indication: VITAMIN SUPPLEMENTATION
     Route: 048
  2. POTASSIUM [Concomitant]
     Indication: MINERAL SUPPLEMENTATION
     Dosage: 99 MG
     Route: 048
  3. TRADJENTA [Suspect]
     Indication: TYPE 2 DIABETES MELLITUS
     Dosage: 5 MG
     Route: 048
     Dates: start: 20110708, end: 20110714
  4. PRAVASTATIN [Concomitant]
     Indication: BLOOD CHOLESTEROL
     Dosage: 20 MG
     Route: 048
  5. LOVAZA [Concomitant]
     Dosage: 4 G
     Route: 048
  6. ATROVENT [Concomitant]
     Indication: BRONCHITIS
     Route: 055
     Dates: start: 20101101
  7. FLUTICASONE [Concomitant]
     Indication: BRONCHITIS
     Route: 055
     Dates: start: 20101101
  8. TRILIPIX [Concomitant]
     Dosage: 135 MG
     Route: 048
  9. VITAMIN D [Concomitant]
     Indication: VITAMIN SUPPLEMENTATION
     Route: 048
  10. METFORMIN HCL [Concomitant]
     Indication: TYPE 2 DIABETES MELLITUS
     Dosage: 2000 MG
     Route: 048
  11. FLOVENT [Concomitant]
     Indication: BRONCHITIS
     Route: 055
     Dates: start: 20101101
  12. MAGNESIUM [Concomitant]
     Indication: MINERAL SUPPLEMENTATION
     Dosage: 250 MG
     Route: 048
  13. METOPROLOL TARTRATE [Concomitant]
     Indication: BLOOD PRESSURE
     Dosage: 50 MG
     Route: 048
  14. ALBUTEROL INHALER [Concomitant]
     Indication: BRONCHITIS
     Route: 055
     Dates: start: 20101101
  15. ASPIRIN [Concomitant]
     Indication: PAIN
     Dosage: 325 MG
     Route: 048
  16. OMEPRAZOLE [Concomitant]
     Indication: GASTROOESOPHAGEAL REFLUX DISEASE
     Dosage: 40 MG
     Route: 048
  17. SYNTHROID [Concomitant]
     Indication: SUPPLEMENTATION THERAPY
     Dosage: 0.112 MG
     Route: 048
  18. ASCORBIC ACID [Concomitant]
     Indication: VITAMIN SUPPLEMENTATION
     Route: 048

REACTIONS (2)
  - BLISTER [None]
  - RASH GENERALISED [None]
